FAERS Safety Report 9313605 (Version 1)
Quarter: 2013Q2

REPORT INFORMATION
  Report Type: Spontaneous
  Country: US (occurrence: US)
  Receive Date: 20130528
  Receipt Date: 20130528
  Transmission Date: 20140414
  Serious: Yes (Hospitalization)
  Sender: FDA-Public Use
  Company Number: US-B.I. PHARMACEUTICALS,INC./RIDGEFIELD-2013-BI-14184BP

PATIENT
  Sex: Female

DRUGS (4)
  1. SPIRIVA [Suspect]
     Indication: CHRONIC OBSTRUCTIVE PULMONARY DISEASE
     Dosage: 18 MCG
     Route: 055
     Dates: start: 2010
  2. ALBUTEROL [Concomitant]
     Indication: ASTHMA
     Route: 055
  3. DULERA [Concomitant]
     Indication: ASTHMA
     Dosage: 4 PUF
     Route: 055
  4. DALIRESP [Concomitant]
     Indication: CHRONIC OBSTRUCTIVE PULMONARY DISEASE
     Route: 048

REACTIONS (4)
  - Pneumonia [Recovered/Resolved]
  - Lung abscess [Recovered/Resolved]
  - Hysterectomy [Recovered/Resolved]
  - Dyspnoea [Not Recovered/Not Resolved]
